FAERS Safety Report 5605987-7 (Version None)
Quarter: 2008Q1

REPORT INFORMATION
  Report Type: 
  Country: None (occurrence: None)
  Receive Date: 20080129
  Receipt Date: 20071017
  Transmission Date: 20080703
  Serious: No
  Sender: FDA-Public Use
  Company Number: US-AMGEN-US248476

PATIENT
  Sex: Male
  Weight: 117.6 kg

DRUGS (2)
  1. VECTIBIX [Suspect]
     Indication: COLORECTAL CANCER
     Route: 042
     Dates: start: 20070108
  2. MAGNESIUM SULFATE [Concomitant]
     Route: 042
     Dates: start: 20060807

REACTIONS (1)
  - HYPOMAGNESAEMIA [None]
